FAERS Safety Report 20882853 (Version 1)
Quarter: 2022Q2

REPORT INFORMATION
  Report Type: Report from Study
  Country: US (occurrence: US)
  Receive Date: 20220527
  Receipt Date: 20220527
  Transmission Date: 20220720
  Serious: Yes (Other)
  Sender: FDA-Public Use
  Company Number: US-BRISTOL-MYERS SQUIBB COMPANY-2022-043673

PATIENT
  Age: 73 Year
  Sex: Female
  Weight: 64.41 kg

DRUGS (22)
  1. REVLIMID [Suspect]
     Active Substance: LENALIDOMIDE
     Indication: Plasma cell myeloma
     Route: 048
  2. VITAMINS [Concomitant]
     Active Substance: VITAMINS
  3. CALCIUM CARBONATE [Concomitant]
     Active Substance: CALCIUM CARBONATE
  4. FOLIC ACID [Concomitant]
     Active Substance: FOLIC ACID
  5. Low dose Aspirin EC [Concomitant]
  6. MAGNESIUM [Concomitant]
     Active Substance: MAGNESIUM
  7. MAGNESIUM [Concomitant]
     Active Substance: MAGNESIUM
  8. NAPROXEN [Concomitant]
     Active Substance: NAPROXEN
  9. BACLOFEN [Concomitant]
     Active Substance: BACLOFEN
  10. OMEPRAZOLE [Concomitant]
     Active Substance: OMEPRAZOLE
  11. OXYCODONE [Concomitant]
     Active Substance: OXYCODONE
  12. POTASSIUM [Concomitant]
     Active Substance: POTASSIUM
  13. THERATEARS [Concomitant]
     Active Substance: CARBOXYMETHYLCELLULOSE SODIUM
  14. VALACYCLOVIR [Concomitant]
     Active Substance: VALACYCLOVIR HYDROCHLORIDE
  15. VITAMIN B12 [Concomitant]
     Active Substance: CYANOCOBALAMIN
  16. VITAMIN D3 [Concomitant]
     Active Substance: CHOLECALCIFEROL
  17. ZOMETA [Concomitant]
     Active Substance: ZOLEDRONIC ACID
  18. LIDOCAINE [Concomitant]
     Active Substance: LIDOCAINE
  19. RESTASIS [Concomitant]
     Active Substance: CYCLOSPORINE
  20. NYSTATIN [Concomitant]
     Active Substance: NYSTATIN
  21. AZITHROMYCIN [Concomitant]
     Active Substance: AZITHROMYCIN
  22. FERROUS SULFATE [Concomitant]
     Active Substance: FERROUS SULFATE

REACTIONS (1)
  - Tooth disorder [Unknown]
